FAERS Safety Report 7343152-6 (Version None)
Quarter: 2011Q1

REPORT INFORMATION
  Report Type: 
  Country: None (occurrence: None)
  Receive Date: 20110310
  Receipt Date: 20110301
  Transmission Date: 20110831
  Serious: Yes (Other)
  Sender: FDA-Public Use
  Company Number: US-JNJFOC-20110301301

PATIENT
  Sex: Female
  Weight: 49.9 kg

DRUGS (11)
  1. DURAGESIC-50 [Suspect]
     Route: 062
  2. PANCREATIC ENZYMES [Concomitant]
     Indication: PANCREATITIS
     Dosage: 15000; 1X4
     Route: 065
  3. GABAPENTIN [Concomitant]
     Indication: NEURALGIA
     Route: 048
  4. AMITRIPTYLINE [Concomitant]
     Indication: PAIN
     Dosage: AT NIGHT
     Route: 048
  5. LORCET-HD [Concomitant]
     Indication: PAIN
     Dosage: 7.5/650 MG AS NEEDED
     Route: 048
  6. DURAGESIC-50 [Suspect]
     Indication: PANCREATITIS
     Route: 062
  7. DURAGESIC-50 [Suspect]
     Route: 062
  8. UNKNOWN MEDICATION [Concomitant]
     Indication: ULCER
     Route: 048
  9. SOMA [Concomitant]
     Indication: MUSCLE DISORDER
     Route: 048
  10. FENTANYL-100 [Suspect]
     Indication: PANCREATITIS
     Route: 062
  11. BENTYL [Concomitant]
     Indication: IRRITABLE BOWEL SYNDROME
     Route: 048

REACTIONS (7)
  - GAIT DISTURBANCE [None]
  - LACERATION [None]
  - SKIN DISCOLOURATION [None]
  - SKIN LESION [None]
  - JOINT DISLOCATION [None]
  - FRACTURE [None]
  - EYE SWELLING [None]
